FAERS Safety Report 9178612 (Version 1)
Quarter: 2012Q4

REPORT INFORMATION
  Report Type: 
  Country: US (occurrence: US)
  Receive Date: 20121029
  Receipt Date: 20121029
  Transmission Date: 20130627
  Serious: Yes (Other)
  Sender: FDA-Public Use
  Company Number: 2012SP003000

PATIENT
  Age: 12 Year
  Sex: Male
  Weight: 54 kg

DRUGS (3)
  1. LATUDA [Suspect]
     Indication: HALLUCINATION
     Route: 048
     Dates: start: 201210, end: 20121013
  2. LATUDA [Suspect]
     Indication: HALLUCINATION
     Route: 048
     Dates: start: 201209, end: 201210
  3. LEXAPRO [Concomitant]
     Indication: PRODUCT USED FOR UNKNOWN INDICATION

REACTIONS (6)
  - Violence-related symptom [Recovered/Resolved]
  - Abnormal behaviour [Recovered/Resolved]
  - Aggression [Recovered/Resolved]
  - Off label use [Recovered/Resolved]
  - Vomiting [Recovered/Resolved]
  - Agitation [Recovered/Resolved]
